FAERS Safety Report 25072639 (Version 1)
Quarter: 2025Q1

REPORT INFORMATION
  Report Type: Spontaneous
  Country: US (occurrence: US)
  Receive Date: 20250313
  Receipt Date: 20250313
  Transmission Date: 20250409
  Serious: Yes (Other)
  Sender: APOTEX
  Company Number: US-APOTEX-2025AP002953

PATIENT
  Age: 80 Year
  Sex: Female

DRUGS (4)
  1. DASATINIB [Suspect]
     Active Substance: DASATINIB
     Indication: Philadelphia chromosome positive
     Dosage: 20 MILLIGRAM, QD
     Route: 065
  2. DASATINIB [Suspect]
     Active Substance: DASATINIB
     Indication: Acute lymphocytic leukaemia
  3. CYCLOPHOSPHAMIDE;CYTARABINE;DEXAMETHASONE;DOXORUBICIN;METHOTREXATE;VIN [Concomitant]
     Indication: Philadelphia chromosome positive
     Route: 065
  4. CYCLOPHOSPHAMIDE;CYTARABINE;DEXAMETHASONE;DOXORUBICIN;METHOTREXATE;VIN [Concomitant]
     Indication: Acute lymphocytic leukaemia

REACTIONS (2)
  - Pulmonary hypertension [Unknown]
  - Pleural effusion [Unknown]
